FAERS Safety Report 18314843 (Version 1)
Quarter: 2020Q3

REPORT INFORMATION
  Report Type: Report from Study
  Country: IT (occurrence: IT)
  Receive Date: 20200925
  Receipt Date: 20200925
  Transmission Date: 20201103
  Serious: Yes (Death, Hospitalization)
  Sender: FDA-Public Use
  Company Number: IT-EXELIXIS-XL18420032543

PATIENT
  Age: 61 Year
  Sex: Female
  Weight: 63 kg

DRUGS (15)
  1. PANTOPRAZOLE [Concomitant]
     Active Substance: PANTOPRAZOLE
  2. BLINDED XL184 [Suspect]
     Active Substance: CABOZANTINIB
     Indication: THYROID CANCER
     Dosage: 60 MG, QD
     Route: 048
     Dates: start: 20200715, end: 20200831
  3. BISOPROLOL [Concomitant]
     Active Substance: BISOPROLOL
  4. OLANZAPINE. [Concomitant]
     Active Substance: OLANZAPINE
  5. CALCIUM CARBONATE. [Concomitant]
     Active Substance: CALCIUM CARBONATE
  6. EUTIMIL [Concomitant]
     Active Substance: PAROXETINE HYDROCHLORIDE
  7. PARACETAMOL [Concomitant]
     Active Substance: ACETAMINOPHEN
  8. XANAX [Concomitant]
     Active Substance: ALPRAZOLAM
  9. EUTIROX [Concomitant]
     Active Substance: LEVOTHYROXINE SODIUM
  10. TEGRETOL [Concomitant]
     Active Substance: CARBAMAZEPINE
  11. PLACEBO [Suspect]
     Active Substance: UNSPECIFIED INGREDIENT
     Indication: THYROID CANCER
     Dosage: 60 MG, QD
     Route: 048
     Dates: start: 20200715, end: 20200831
  12. TRIATEC [Concomitant]
  13. MS CONTIN [Concomitant]
     Active Substance: MORPHINE SULFATE
  14. DIBASE [Concomitant]
     Active Substance: CHOLECALCIFEROL
  15. ORAMORPH [Concomitant]
     Active Substance: MORPHINE SULFATE

REACTIONS (2)
  - Paraparesis [Not Recovered/Not Resolved]
  - Urinary retention [Not Recovered/Not Resolved]

NARRATIVE: CASE EVENT DATE: 20200827
